FAERS Safety Report 10574101 (Version 1)
Quarter: 2014Q4

REPORT INFORMATION
  Report Type: Spontaneous
  Country: FR (occurrence: FR)
  Receive Date: 20141110
  Receipt Date: 20141110
  Transmission Date: 20150529
  Serious: Yes (Other)
  Sender: FDA-Public Use
  Company Number: PHHY2012FR136303

PATIENT
  Age: 56 Year
  Sex: Male

DRUGS (5)
  1. VORICONAZOLE. [Suspect]
     Active Substance: VORICONAZOLE
     Indication: PRODUCT USED FOR UNKNOWN INDICATION
     Route: 065
  2. CICLOSPORIN [Suspect]
     Active Substance: CYCLOSPORINE
     Indication: IMMUNOSUPPRESSION
     Route: 065
  3. MYCOPHENOLATE MOFETIL. [Suspect]
     Active Substance: MYCOPHENOLATE MOFETIL
     Indication: IMMUNOSUPPRESSION
     Dosage: 2 G, QD
     Route: 065
  4. FLUCONAZOLE. [Suspect]
     Active Substance: FLUCONAZOLE
     Indication: PNEUMONIA BACTERIAL
     Dosage: 100 MG, QD
     Route: 065
  5. PREDNISOLONE. [Suspect]
     Active Substance: PREDNISOLONE
     Indication: IMMUNOSUPPRESSION
     Dosage: 20 MG, QD
     Route: 065

REACTIONS (11)
  - Phaehyphomycosis [Recovered/Resolved]
  - Mediastinitis [Unknown]
  - Acute pulmonary oedema [Unknown]
  - Infectious disease carrier [Unknown]
  - Confusional state [Unknown]
  - Skin necrosis [Unknown]
  - Endocarditis bacterial [Unknown]
  - Hallucination [Unknown]
  - Condition aggravated [Unknown]
  - Pneumonia bacterial [Unknown]
  - Alternaria infection [Recovered/Resolved]
